FAERS Safety Report 4741491-6 (Version None)
Quarter: 2005Q3

REPORT INFORMATION
  Report Type: 
  Country: None (occurrence: None)
  Receive Date: 20050808
  Receipt Date: 20050725
  Transmission Date: 20060218
  Serious: Yes (Life-Threatening)
  Sender: FDA-Public Use
  Company Number: WAES 0507USA03936

PATIENT
  Age: 53 Year
  Sex: Female

DRUGS (3)
  1. CANCIDAS [Suspect]
     Indication: ASPERGILLOSIS
     Dosage: 50 MG/DAILY
     Route: 042
     Dates: start: 20050722, end: 20050724
  2. CYCLOSPORINE [Concomitant]
  3. MEROPENEM [Concomitant]

REACTIONS (3)
  - CEREBRAL ASPERGILLOSIS [None]
  - ENCEPHALITIS VIRAL [None]
  - TOXOPLASMOSIS [None]
